FAERS Safety Report 8997491 (Version 1)
Quarter: 2013Q1

REPORT INFORMATION
  Report Type: Spontaneous
  Country: US (occurrence: US)
  Receive Date: 20130104
  Receipt Date: 20130104
  Transmission Date: 20140127
  Serious: Yes (Death, Other)
  Sender: FDA-Public Use
  Company Number: US-009507513-1301USA001518

PATIENT
  Sex: Female

DRUGS (3)
  1. SINGULAIR [Suspect]
     Indication: ASTHMA
     Dosage: 1 PUFF, QD
  2. SEREVENT [Suspect]
     Dosage: 2 PUFFS, QD
  3. BECLOMETHASONE DIPROPIONATE [Concomitant]
     Dosage: 2 PUFFS, QD

REACTIONS (2)
  - Abortion induced [Fatal]
  - Maternal exposure timing unspecified [Fatal]
